FAERS Safety Report 7825913 (Version 4)
Quarter: 2013Q4

REPORT INFORMATION
  Report Type: Report from Study
  Country: FR (occurrence: FR)
  Receive Date: 20110224
  Receipt Date: 20131016
  Transmission Date: 20140711
  Serious: Yes (Hospitalization, Other)
  Sender: FDA-Public Use
  Company Number: FR-PFIZER INC-2010172927

PATIENT
  Age: 58 Year
  Sex: Female
  Weight: 56 kg

DRUGS (14)
  1. ATARAX [Suspect]
     Dosage: UNK
     Dates: start: 20101005, end: 20101011
  2. WARFARIN SODIUM [Suspect]
     Indication: EMBOLISM ARTERIAL
     Dosage: 5 MG, 1X/DAY
     Route: 048
     Dates: start: 20101007, end: 20101011
  3. WARFARIN SODIUM [Suspect]
     Indication: EMBOLISM
  4. WARFARIN SODIUM [Suspect]
     Indication: EMBOLISM
  5. ENOXAPARIN [Suspect]
     Indication: EMBOLISM
     Dosage: 1DF: 0.6 UNITS NOT SPECIFIED
     Route: 058
     Dates: start: 20101007, end: 20101011
  6. PLACEBO [Suspect]
     Indication: EMBOLISM ARTERIAL
     Dosage: ORAL WITH APIXABAN AND WARFARIN?SC WITH ENOXAPARIN
     Dates: start: 20101007, end: 20101011
  7. PLACEBO [Suspect]
     Indication: EMBOLISM
  8. EFFERALGAN [Suspect]
     Dosage: UNK
     Dates: start: 20101005, end: 20101011
  9. AUGMENTIN [Suspect]
     Dosage: UNK
     Dates: start: 20101007, end: 20101011
  10. IMIGRANE [Concomitant]
     Dosage: UNK
     Dates: start: 20101013
  11. IMOVANE [Concomitant]
     Dosage: UNK
     Dates: start: 20101016, end: 20101016
  12. ROCEPHINE [Concomitant]
     Dosage: UNK
     Dates: start: 20101014, end: 201010
  13. AMOXICILLIN [Concomitant]
     Dosage: UNK
     Dates: start: 20101011, end: 20101012
  14. PARACETAMOL [Concomitant]
     Dates: start: 20101005, end: 20101011

REACTIONS (4)
  - Lung neoplasm malignant [Not Recovered/Not Resolved]
  - Hepatocellular injury [Recovered/Resolved]
  - Cholestasis [Recovering/Resolving]
  - Drug-induced liver injury [Recovered/Resolved]
